FAERS Safety Report 8803152 (Version 2)
Quarter: 2013Q1

REPORT INFORMATION
  Report Type: Spontaneous
  Country: FR (occurrence: FR)
  Receive Date: 20120924
  Receipt Date: 20130131
  Transmission Date: 20140127
  Serious: Yes (Death, Hospitalization, Other)
  Sender: FDA-Public Use
  Company Number: FR-PFIZER INC-2012231835

PATIENT
  Age: 77 Year
  Sex: Female

DRUGS (5)
  1. TAHOR [Suspect]
     Dosage: 10 MG, 1X/DAY
     Route: 048
     Dates: end: 20120827
  2. KEPPRA [Suspect]
     Dosage: 1 DF, 1X/DAY
     Route: 048
     Dates: start: 201205, end: 2012
  3. BACTRIM [Suspect]
     Dosage: 1 DF, 1X/DAY
     Route: 048
     Dates: start: 201207, end: 2012
  4. CORTANCYL [Suspect]
     Dosage: 40 MG, 1X/DAY
     Route: 048
     Dates: start: 201207
  5. AUGMENTIN [Suspect]
     Dosage: 1 G, 4X/DAY
     Route: 048
     Dates: start: 20120809, end: 20120813

REACTIONS (3)
  - Respiratory tract infection [Fatal]
  - Mixed liver injury [Not Recovered/Not Resolved]
  - Cytomegalovirus test positive [Unknown]
